FAERS Safety Report 6846803-5 (Version None)
Quarter: 2010Q3

REPORT INFORMATION
  Report Type: 
  Country: None (occurrence: None)
  Receive Date: 20100715
  Receipt Date: 20070919
  Transmission Date: 20110219
  Serious: No
  Sender: FDA-Public Use
  Company Number: US-PFIZER INC-2007079672

PATIENT
  Sex: Female
  Weight: 75 kg

DRUGS (4)
  1. CHANTIX [Suspect]
     Dates: start: 20070901
  2. SPIRIVA [Concomitant]
  3. ALBUTEROL [Concomitant]
  4. TYLENOL [Concomitant]

REACTIONS (5)
  - ABDOMINAL DISCOMFORT [None]
  - BED BUG INFESTATION [None]
  - DIARRHOEA [None]
  - NAUSEA [None]
  - VOMITING [None]
